FAERS Safety Report 5245116-5 (Version None)
Quarter: 2007Q1

REPORT INFORMATION
  Report Type: 
  Country: None (occurrence: None)
  Receive Date: 20070223
  Receipt Date: 20070219
  Transmission Date: 20070707
  Serious: Yes (Hospitalization, Other)
  Sender: FDA-Public Use
  Company Number: PHNU2007DE00679

PATIENT
  Age: 5 Year
  Sex: Male
  Weight: 17 kg

DRUGS (5)
  1. SANDIMMUNE [Suspect]
     Indication: RENAL TRANSPLANT
     Dosage: 85 MG/DAY
     Route: 042
     Dates: start: 20061206
  2. CELLCEPT [Concomitant]
  3. CORTISONE ACETATE [Concomitant]
  4. ANTIBIOTICS [Concomitant]
  5. ANTIHYPERTENSIVE DRUGS [Concomitant]

REACTIONS (3)
  - ABDOMINAL ADHESIONS [None]
  - ILEUS [None]
  - PERITONITIS [None]
